FAERS Safety Report 5419519-X (Version None)
Quarter: 2007Q3

REPORT INFORMATION
  Report Type: 
  Country: None (occurrence: None)
  Receive Date: 20070820
  Receipt Date: 20070814
  Transmission Date: 20080115
  Serious: Yes (Hospitalization)
  Sender: FDA-Public Use
  Company Number: IT-AVENTIS-200713255EU

PATIENT
  Age: 75 Year
  Sex: Female

DRUGS (2)
  1. LASIX [Suspect]
     Route: 048
     Dates: start: 20070603, end: 20070608
  2. ENALAPRIL MALEATE [Concomitant]
     Route: 048

REACTIONS (2)
  - SYNCOPE [None]
  - TORSADE DE POINTES [None]
